FAERS Safety Report 8818285 (Version 1)
Quarter: 2012Q4

REPORT INFORMATION
  Report Type: 
  Country: US (occurrence: US)
  Receive Date: 20121001
  Receipt Date: 20121001
  Transmission Date: 20130627
  Serious: No
  Sender: FDA-Public Use
  Company Number: US-ASTRAZENECA-2012SE72752

PATIENT
  Sex: Female

DRUGS (4)
  1. CRESTOR [Suspect]
     Dosage: 5 MG THREE TIMES A WEEK
     Route: 048
     Dates: start: 201207
  2. CRESTOR [Suspect]
     Route: 048
  3. CRESTOR [Suspect]
     Dosage: 10 MG THREE TIMES A WEEK
     Route: 048
  4. CRESTOR [Suspect]
     Dosage: 5 MG FOUR TIMES A WEEK
     Route: 048

REACTIONS (8)
  - Spinal pain [Not Recovered/Not Resolved]
  - Myalgia [Unknown]
  - Musculoskeletal chest pain [Not Recovered/Not Resolved]
  - Myalgia [Not Recovered/Not Resolved]
  - Pain in extremity [Not Recovered/Not Resolved]
  - Fatigue [Not Recovered/Not Resolved]
  - Intentional drug misuse [Unknown]
  - Off label use [Unknown]
